FAERS Safety Report 4362565-8 (Version None)
Quarter: 2004Q2

REPORT INFORMATION
  Report Type: 
  Country: None (occurrence: None)
  Receive Date: 20040517
  Receipt Date: 20040126
  Transmission Date: 20050107
  Serious: No
  Sender: FDA-Public Use
  Company Number: S04-USA-00736-01

PATIENT
  Age: 79 Year
  Sex: Male

DRUGS (5)
  1. NAMENDA [Suspect]
     Indication: DEMENTIA ALZHEIMER'S TYPE
     Dosage: 5 MG QD PO
     Route: 048
     Dates: start: 20040123
  2. ARICEPT (CONEPEZIL HYDROCHLORIDE) [Concomitant]
  3. TOPROL-XL [Concomitant]
  4. LOTENSIN [Concomitant]
  5. OTHER MEDICATIONS [Concomitant]

REACTIONS (4)
  - AGITATION [None]
  - CONFUSIONAL STATE [None]
  - DIZZINESS [None]
  - ENURESIS [None]
